FAERS Safety Report 7138278-6 (Version None)
Quarter: 2010Q4

REPORT INFORMATION
  Report Type: 
  Country: None (occurrence: None)
  Receive Date: 20101202
  Receipt Date: 20101202
  Transmission Date: 20110411
  Serious: Yes (Life-Threatening, Hospitalization)
  Sender: FDA-Public Use
  Company Number: None

PATIENT
  Age: 70 Year
  Sex: Male
  Weight: 68 kg

DRUGS (2)
  1. LITHIUM CARBONATE [Suspect]
     Dosage: 150 MG EVERY DAY PO
     Route: 048
     Dates: end: 20100926
  2. AMILORIDE HYDROCHLORIDE [Suspect]
     Dosage: 5 MG EVERY DAY PO
     Route: 048
     Dates: start: 20100402, end: 20100926

REACTIONS (5)
  - AGITATION [None]
  - CONFUSIONAL STATE [None]
  - ELECTROLYTE IMBALANCE [None]
  - RENAL FAILURE ACUTE [None]
  - URINARY TRACT INFECTION [None]
